FAERS Safety Report 8326760-5 (Version None)
Quarter: 2012Q2

REPORT INFORMATION
  Report Type: 
  Country: None (occurrence: None)
  Receive Date: 20120501
  Receipt Date: 20120421
  Transmission Date: 20120825
  Serious: Yes (Hospitalization, Other)
  Sender: FDA-Public Use
  Company Number: US-JNJFOC-20111201368

PATIENT

DRUGS (3)
  1. REMICADE [Suspect]
     Route: 042
     Dates: start: 20001212
  2. REMICADE [Suspect]
     Indication: PRODUCT USED FOR UNKNOWN INDICATION
     Route: 042
     Dates: start: 20030528
  3. REMICADE [Suspect]
     Route: 042
     Dates: start: 20110727

REACTIONS (3)
  - BREAST CANCER [None]
  - INFECTION [None]
  - NEOPLASM MALIGNANT [None]
